FAERS Safety Report 18966190 (Version 1)
Quarter: 2021Q1

REPORT INFORMATION
  Report Type: Spontaneous
  Country: US (occurrence: US)
  Receive Date: 20210303
  Receipt Date: 20210303
  Transmission Date: 20210420
  Serious: No
  Sender: FDA-Public Use
  Company Number: US-ENDO PHARMACEUTICALS INC-2021-000918

PATIENT
  Sex: Male
  Weight: 92.97 kg

DRUGS (2)
  1. XIAFLEX [Suspect]
     Active Substance: COLLAGENASE CLOSTRIDIUM HISTOLYTICUM
     Indication: DUPUYTREN^S CONTRACTURE
     Dosage: UNKNOWN (2ND INJECTION, LEFT RING AND SMALL FINGER)
     Route: 026
     Dates: start: 20201208
  2. XIAFLEX [Suspect]
     Active Substance: COLLAGENASE CLOSTRIDIUM HISTOLYTICUM
     Dosage: UNKNOWN (1ST INJECTION, LEFT RING AND SMALL FINGER)
     Route: 026
     Dates: start: 20171114

REACTIONS (4)
  - Incorrect dose administered [Unknown]
  - Dupuytren^s contracture [Unknown]
  - Inappropriate schedule of product administration [Unknown]
  - Disease recurrence [Unknown]
